FAERS Safety Report 13965646 (Version 1)
Quarter: 2017Q3

REPORT INFORMATION
  Report Type: Spontaneous
  Country: US (occurrence: US)
  Receive Date: 20170913
  Receipt Date: 20170913
  Transmission Date: 20171128
  Serious: No
  Sender: FDA-Public Use
  Company Number: US-PFIZER INC-2017391753

PATIENT
  Age: 49 Year
  Sex: Female
  Weight: 124.7 kg

DRUGS (10)
  1. SERTRALINE [Concomitant]
     Active Substance: SERTRALINE HYDROCHLORIDE
     Dosage: TAKE 1 TABLET BY ORAL ROUTE 2 TIMES EVERY DAY
     Route: 048
  2. METHOTREXATE SODIUM. [Suspect]
     Active Substance: METHOTREXATE SODIUM
     Indication: RHEUMATOID ARTHRITIS
     Dosage: UNK
  3. SULFASALAZINE. [Suspect]
     Active Substance: SULFASALAZINE
     Indication: RHEUMATOID ARTHRITIS
     Dosage: UNK
  4. FUROSEMIDE. [Concomitant]
     Active Substance: FUROSEMIDE
     Dosage: TAKE 1 TABLET BY ORAL ROUTE EVERY DAY
     Route: 048
  5. VITAMIN D3 [Concomitant]
     Active Substance: CHOLECALCIFEROL
     Dosage: UNK
  6. METOPROLOL TARTRATE. [Concomitant]
     Active Substance: METOPROLOL TARTRATE
     Dosage: 50 MG, 2X/DAY [TAKE 1 TABLET BY ORAL ROUTE 2 TABLET TIMES EVERY DAY WITH MEALS]
     Route: 048
  7. ACTEMRA [Concomitant]
     Active Substance: TOCILIZUMAB
     Dosage: INFUSE (8 MG/KG) BY INTRAVENOUS ROUTE EVERY 4 WEEKS OVER NOT TO EXCEED 800 MG PER INFUSION
     Route: 042
     Dates: start: 20170515, end: 20170724
  8. HYDROXYCHLOROQUINE [Suspect]
     Active Substance: HYDROXYCHLOROQUINE
     Indication: RHEUMATOID ARTHRITIS
     Dosage: UNK
  9. AMBIEN [Concomitant]
     Active Substance: ZOLPIDEM TARTRATE
     Dosage: TAKE 1 TABLET BY ORAL ROUTE EVERY DAY AT BEDTIME
     Route: 048
  10. ASPIRIN. [Concomitant]
     Active Substance: ASPIRIN
     Dosage: TAKE 1 TABLET BY ORAL ROUTE EVERY DAY
     Route: 048

REACTIONS (2)
  - Drug ineffective [Unknown]
  - Oral pain [Unknown]
